FAERS Safety Report 13754332 (Version 2)
Quarter: 2017Q3

REPORT INFORMATION
  Report Type: Spontaneous
  Country: US (occurrence: US)
  Receive Date: 20170714
  Receipt Date: 20170803
  Transmission Date: 20171127
  Serious: Yes (Other)
  Sender: FDA-Public Use
  Company Number: US-WEST-WARD PHARMACEUTICALS CORP.-US-H14001-17-02447

PATIENT
  Sex: Female
  Weight: 90.7 kg

DRUGS (32)
  1. TOBRAMYCIN. [Suspect]
     Active Substance: TOBRAMYCIN
     Indication: BRONCHITIS CHRONIC
  2. PHENERGAN [Concomitant]
     Active Substance: PROMETHAZINE HYDROCHLORIDE
     Indication: MIGRAINE
     Route: 065
     Dates: start: 20150324
  3. VITAMIN D3 [Concomitant]
     Active Substance: CHOLECALCIFEROL
     Indication: VITAMIN D DEFICIENCY
     Route: 065
     Dates: start: 20150314
  4. PROZAC [Concomitant]
     Active Substance: FLUOXETINE HYDROCHLORIDE
     Indication: MAJOR DEPRESSION
     Route: 065
     Dates: start: 20150310
  5. TOPAMAX [Concomitant]
     Active Substance: TOPIRAMATE
     Indication: PULMONARY HYPERTENSION
     Route: 065
     Dates: start: 20150310
  6. VANCOMYCIN [Suspect]
     Active Substance: VANCOMYCIN
     Indication: BRONCHITIS CHRONIC
     Route: 065
     Dates: start: 201506
  7. XYREM [Suspect]
     Active Substance: SODIUM OXYBATE
     Dosage: DOSE ADJUSTMENTS
     Route: 048
     Dates: start: 201512
  8. MAXALT-MLT [Concomitant]
     Active Substance: RIZATRIPTAN BENZOATE
     Indication: MIGRAINE
     Route: 065
     Dates: start: 20150310
  9. PREVACID [Concomitant]
     Active Substance: LANSOPRAZOLE
     Indication: GASTROOESOPHAGEAL REFLUX DISEASE
     Route: 065
     Dates: start: 20150310
  10. VERAPAMIL [Concomitant]
     Active Substance: VERAPAMIL HYDROCHLORIDE
     Indication: CLUSTER HEADACHE
     Route: 065
     Dates: start: 20150310
  11. VANCOMYCIN [Suspect]
     Active Substance: VANCOMYCIN
     Indication: SINUSITIS
  12. CARBONIC ANHYDRASE [Suspect]
     Active Substance: UNSPECIFIED INGREDIENT
     Indication: PRODUCT USED FOR UNKNOWN INDICATION
     Route: 065
  13. CYMBALTA [Concomitant]
     Active Substance: DULOXETINE HYDROCHLORIDE
     Indication: FIBROMYALGIA
     Route: 065
     Dates: start: 20150310
  14. DIAMOX SEQUELS [Concomitant]
     Active Substance: ACETAZOLAMIDE
     Indication: INTRACRANIAL PRESSURE INCREASED
     Route: 065
     Dates: start: 20150310
  15. MIRENA [Concomitant]
     Active Substance: LEVONORGESTREL
     Indication: UTERINE LEIOMYOMA
     Route: 065
     Dates: start: 20150310
  16. POTASSIUM CITRATE. [Concomitant]
     Active Substance: POTASSIUM CITRATE
     Indication: BLOOD POTASSIUM DECREASED
     Route: 065
     Dates: start: 20150310
  17. XYREM [Suspect]
     Active Substance: SODIUM OXYBATE
     Indication: NARCOLEPSY
     Dosage: DOSE ADJUSTMENTS
     Route: 048
     Dates: start: 20150401, end: 201505
  18. SELSUN [Concomitant]
     Active Substance: SELENIUM SULFIDE
     Indication: TINEA VERSICOLOUR
     Route: 065
     Dates: start: 20150314
  19. DIAMOX SEQUELS [Concomitant]
     Active Substance: ACETAZOLAMIDE
     Indication: IDIOPATHIC INTRACRANIAL HYPERTENSION
  20. PROAIR HFA [Concomitant]
     Active Substance: ALBUTEROL SULFATE
     Indication: ASTHMA
     Route: 065
     Dates: start: 20150310
  21. TOPAMAX [Concomitant]
     Active Substance: TOPIRAMATE
     Indication: IDIOPATHIC INTRACRANIAL HYPERTENSION
  22. PSEUDOEPHEDRINE [Concomitant]
     Active Substance: PSEUDOEPHEDRINE
     Indication: PRODUCT USED FOR UNKNOWN INDICATION
     Route: 065
     Dates: start: 20150330
  23. DULOXETINE HYDROCHLORIDE. [Concomitant]
     Active Substance: DULOXETINE HYDROCHLORIDE
     Indication: PRODUCT USED FOR UNKNOWN INDICATION
     Route: 065
     Dates: start: 20150310
  24. XYREM [Suspect]
     Active Substance: SODIUM OXYBATE
     Dosage: DOSE ADJUSTMENTS
     Route: 048
     Dates: start: 201507
  25. VITAMIN D3 [Concomitant]
     Active Substance: CHOLECALCIFEROL
     Route: 065
     Dates: start: 20150324
  26. BUSPIRONE HYDROCHLORIDE. [Concomitant]
     Active Substance: BUSPIRONE HYDROCHLORIDE
     Indication: ANXIETY
     Route: 065
     Dates: start: 20150310
  27. EFFEXOR XR [Concomitant]
     Active Substance: VENLAFAXINE HYDROCHLORIDE
     Indication: DEPRESSION
     Route: 065
     Dates: start: 20150310
  28. DICLOFENAC [Concomitant]
     Active Substance: DICLOFENAC
     Indication: PRODUCT USED FOR UNKNOWN INDICATION
     Route: 065
     Dates: start: 20150310
  29. TOBRAMYCIN. [Suspect]
     Active Substance: TOBRAMYCIN
     Indication: SINUSITIS
     Route: 065
     Dates: start: 201506
  30. XYREM [Suspect]
     Active Substance: SODIUM OXYBATE
     Indication: CATAPLEXY
     Route: 048
     Dates: start: 2015, end: 2015
  31. FORTICAL [Concomitant]
     Active Substance: CALCITONIN SALMON
     Indication: ACIDOSIS
     Route: 065
     Dates: start: 20150324
  32. MODAFINIL. [Concomitant]
     Active Substance: MODAFINIL
     Indication: NARCOLEPSY
     Route: 065
     Dates: start: 20150310

REACTIONS (10)
  - Nephrolithiasis [Recovered/Resolved]
  - Muscle rigidity [Unknown]
  - Influenza [Recovered/Resolved]
  - Drug hypersensitivity [Unknown]
  - Muscle twitching [Unknown]
  - Crying [Not Recovered/Not Resolved]
  - Acidosis [Unknown]
  - Pyrexia [Unknown]
  - Hypertension [Unknown]
  - Off label use [Unknown]

NARRATIVE: CASE EVENT DATE: 2015
